FAERS Safety Report 5735263-3 (Version None)
Quarter: 2008Q2

REPORT INFORMATION
  Report Type: 
  Country: None (occurrence: None)
  Receive Date: 20080512
  Receipt Date: 20080505
  Transmission Date: 20081010
  Serious: Yes (Life-Threatening, Hospitalization)
  Sender: FDA-Public Use
  Company Number: US-KINGPHARMUSA00001-K200800516

PATIENT

DRUGS (11)
  1. ALTACE [Suspect]
     Indication: HYPERTENSION
     Dosage: 5 MG, QD
     Route: 048
     Dates: start: 20080116
  2. KARDEGIC                           /00002703/ [Suspect]
     Dosage: 75 MG, QD
     Route: 048
     Dates: start: 20080116, end: 20080127
  3. EFFEXOR [Concomitant]
     Indication: DEPRESSION
     Route: 048
     Dates: start: 20080116, end: 20080122
  4. AMLOR [Concomitant]
     Indication: HYPERTENSION
     Dosage: ORAL
     Dates: start: 20080116
  5. MEMANTINE HCL [Concomitant]
     Dosage: 20 MG, UNK
     Route: 048
     Dates: start: 20080120
  6. INEXIUM                            /01479302/ [Concomitant]
     Dosage: 20 MG, UNK
     Route: 048
     Dates: start: 20080116
  7. LEVOTHYROXINE SODIUM [Concomitant]
     Dosage: 100 UG, UNK
     Route: 048
     Dates: start: 20080116
  8. REMINYL LP [Concomitant]
     Dosage: 16 MG, UNK
     Route: 048
     Dates: start: 20080116
  9. ZOCOR [Concomitant]
     Dosage: 20 MG, UNK
     Route: 048
     Dates: start: 20080116
  10. ARIXTRA [Suspect]
     Indication: PULMONARY EMBOLISM
     Route: 042
     Dates: start: 20080124, end: 20080127
  11. COUMADIN [Suspect]
     Indication: PULMONARY EMBOLISM
     Route: 048
     Dates: start: 20080124, end: 20080127

REACTIONS (7)
  - ANOREXIA [None]
  - GENERAL PHYSICAL HEALTH DETERIORATION [None]
  - HAEMATURIA [None]
  - HAEMOGLOBIN DECREASED [None]
  - LUNG INFECTION [None]
  - PULMONARY EMBOLISM [None]
  - THROMBOSIS [None]
